FAERS Safety Report 17635682 (Version 1)
Quarter: 2020Q2

REPORT INFORMATION
  Report Type: Report from Study
  Country: IN (occurrence: IN)
  Receive Date: 20200406
  Receipt Date: 20200406
  Transmission Date: 20200713
  Serious: Yes (Hospitalization)
  Sender: FDA-Public Use
  Company Number: IN-BAXTER-2020BAX007163

PATIENT
  Age: 77 Year
  Sex: Male

DRUGS (1)
  1. PERITONEAL DIALYSIS SOLUTION WITH 1.5% DEXTROSE [Suspect]
     Active Substance: CALCIUM CHLORIDE\DEXTROSE\MAGNESIUM CHLORIDE\SODIUM CHLORIDE\SODIUM LACTATE
     Indication: RENAL FAILURE
     Dosage: 2 BAGS
     Route: 033

REACTIONS (2)
  - Nervous system disorder [Recovered/Resolved]
  - Fall [Recovered/Resolved]
